FAERS Safety Report 4351251-6 (Version None)
Quarter: 2004Q2

REPORT INFORMATION
  Report Type: 
  Country: None (occurrence: None)
  Receive Date: 20040430
  Receipt Date: 20040430
  Transmission Date: 20050107
  Serious: Yes (Life-Threatening)
  Sender: FDA-Public Use
  Company Number: None

PATIENT
  Age: 61 Year
  Sex: Male
  Weight: 94.6 kg

DRUGS (2)
  1. WARFARIN SODIUM [Suspect]
     Indication: DEEP VEIN THROMBOSIS
     Dosage: 7.5 MG QD EXCEPT WED PO
     Route: 048
     Dates: start: 20030701
  2. OMEPRAZOLE [Suspect]
     Dosage: 20 MG PO QD
     Route: 048
     Dates: start: 20031201

REACTIONS (4)
  - CONJUNCTIVAL HAEMORRHAGE [None]
  - DIARRHOEA [None]
  - DRUG INTERACTION [None]
  - INTERNATIONAL NORMALISED RATIO INCREASED [None]
